FAERS Safety Report 16104384 (Version 1)
Quarter: 2019Q1

REPORT INFORMATION
  Report Type: Spontaneous
  Country: US (occurrence: US)
  Receive Date: 20190322
  Receipt Date: 20190322
  Transmission Date: 20190418
  Serious: No
  Sender: FDA-Public Use
  Company Number: US-GLAXOSMITHKLINE-US2019045281

PATIENT
  Sex: Female

DRUGS (1)
  1. NUCALA [Suspect]
     Active Substance: MEPOLIZUMAB
     Indication: BRONCHITIS
     Dosage: UNK
     Route: 042

REACTIONS (4)
  - Off label use [Unknown]
  - Hypersensitivity [Unknown]
  - Erythema [Unknown]
  - Product use in unapproved indication [Unknown]
